FAERS Safety Report 4290167-0 (Version None)
Quarter: 2004Q1

REPORT INFORMATION
  Report Type: 
  Country: None (occurrence: None)
  Receive Date: 20040209
  Receipt Date: 20040202
  Transmission Date: 20041129
  Serious: Yes (Hospitalization)
  Sender: FDA-Public Use
  Company Number: US-JNJFOC-20040200754

PATIENT
  Age: 53 Year
  Sex: Female
  Weight: 52.1637 kg

DRUGS (2)
  1. TOPAMAX [Suspect]
     Indication: DEPRESSION
     Dosage: 200 MG, IN 1 DAY, ORAL
     Route: 048
     Dates: start: 20000101
  2. DITROPAN XL [Concomitant]

REACTIONS (2)
  - DEPRESSION [None]
  - GALLBLADDER OPERATION [None]
